FAERS Safety Report 4718274-6 (Version None)
Quarter: 2005Q3

REPORT INFORMATION
  Report Type: 
  Country: None (occurrence: None)
  Receive Date: 20050718
  Receipt Date: 20041227
  Transmission Date: 20060218
  Serious: No
  Sender: FDA-Public Use
  Company Number: 2004001052

PATIENT
  Age: 70 Year
  Sex: Male
  Weight: 53.5244 kg

DRUGS (5)
  1. TARCEVA [Suspect]
     Indication: NON-SMALL CELL LUNG CANCER
     Dosage: 150 MG (QD), ORAL
     Route: 048
     Dates: start: 20041209
  2. PREDNISONE [Concomitant]
  3. LANSOPRAZOLE [Concomitant]
  4. BICALUTAMIDE [Concomitant]
  5. OXYCODONE HCL [Concomitant]

REACTIONS (3)
  - DECREASED APPETITE [None]
  - DIZZINESS [None]
  - VISION BLURRED [None]
